FAERS Safety Report 12853076 (Version 3)
Quarter: 2018Q1

REPORT INFORMATION
  Report Type: Spontaneous
  Country: US (occurrence: US)
  Receive Date: 20161017
  Receipt Date: 20180315
  Transmission Date: 20180508
  Serious: No
  Sender: FDA-Public Use
  Company Number: US-JAZZ-2016-US-014084

PATIENT
  Sex: Female

DRUGS (43)
  1. ALPHA LIPOIC ACID [Concomitant]
     Active Substance: .ALPHA.-LIPOIC ACID
  2. BIOTIN [Concomitant]
     Active Substance: BIOTIN
  3. NAC [Concomitant]
  4. VITAMIN C [Concomitant]
     Active Substance: ASCORBIC ACID
  5. VITAMIN D [Concomitant]
     Active Substance: CHOLECALCIFEROL
  6. VITAMIN B2 [Concomitant]
     Active Substance: RIBOFLAVIN
  7. XYREM [Suspect]
     Active Substance: SODIUM OXYBATE
     Dosage: 3 G, BID
     Route: 048
     Dates: start: 200903, end: 200904
  8. XYREM [Suspect]
     Active Substance: SODIUM OXYBATE
     Dosage: DOSE ADJUSTMENTS
     Route: 048
     Dates: start: 200904, end: 201511
  9. MELATONIN [Concomitant]
     Active Substance: MELATONIN
  10. MEDROL [Concomitant]
     Active Substance: METHYLPREDNISOLONE
  11. SELENIUM [Concomitant]
     Active Substance: SELENIUM
  12. VALTREX [Concomitant]
     Active Substance: VALACYCLOVIR HYDROCHLORIDE
  13. EVOXAC [Concomitant]
     Active Substance: CEVIMELINE HYDROCHLORIDE
  14. FLUOXETINE [Concomitant]
     Active Substance: FLUOXETINE HYDROCHLORIDE
  15. XYREM [Suspect]
     Active Substance: SODIUM OXYBATE
     Indication: INSOMNIA
     Dosage: 2.25 G, BID
     Route: 048
     Dates: start: 200405, end: 2004
  16. MANGANESE GLUCONATE. [Concomitant]
     Active Substance: MANGANESE GLUCONATE
  17. VITAMIN B1 [Concomitant]
     Active Substance: THIAMINE HYDROCHLORIDE
  18. VITAMIN B12 [Concomitant]
     Active Substance: CYANOCOBALAMIN
  19. VITAMIN E [Concomitant]
     Active Substance: .ALPHA.-TOCOPHEROL
  20. LISINOPRIL. [Concomitant]
     Active Substance: LISINOPRIL
  21. BACLOFEN. [Concomitant]
     Active Substance: BACLOFEN
  22. CALCIUM +D [Concomitant]
     Active Substance: CALCIUM\VITAMIN D
  23. CRESTOR [Concomitant]
     Active Substance: ROSUVASTATIN CALCIUM
  24. GLUCOSAMINE CHONDROITIN [Concomitant]
     Active Substance: CHONDROITIN SULFATE (BOVINE)\GLUCOSAMINE HYDROCHLORIDE
  25. NIACIN. [Concomitant]
     Active Substance: NIACIN
  26. ZINC CHELATE [Concomitant]
  27. OMEPRAZOLE. [Concomitant]
     Active Substance: OMEPRAZOLE
  28. LYRICA [Suspect]
     Active Substance: PREGABALIN
     Indication: PRODUCT USED FOR UNKNOWN INDICATION
     Dosage: UNK
     Dates: start: 20160724, end: 20160726
  29. FISH OIL [Concomitant]
     Active Substance: FISH OIL
  30. LEXAPRO [Concomitant]
     Active Substance: ESCITALOPRAM OXALATE
  31. WELLBUTRIN [Concomitant]
     Active Substance: BUPROPION HYDROCHLORIDE
  32. ALPRAZOLAM. [Concomitant]
     Active Substance: ALPRAZOLAM
  33. XYREM [Suspect]
     Active Substance: SODIUM OXYBATE
     Dosage: 3.75 G, FIRST DOSE
     Route: 048
     Dates: start: 201512
  34. XYREM [Suspect]
     Active Substance: SODIUM OXYBATE
     Dosage: 4.5 G, SECOND DOSE
     Route: 048
     Dates: start: 201512
  35. COENZYME Q10 [Concomitant]
     Active Substance: UBIDECARENONE
  36. VITAMIN B5 [Concomitant]
     Active Substance: PANTOTHENIC ACID
  37. VSL 3 [Concomitant]
     Active Substance: PROBIOTICS NOS
  38. T3 [Concomitant]
     Active Substance: LIOTHYRONINE SODIUM
  39. XANAX [Concomitant]
     Active Substance: ALPRAZOLAM
  40. COPPER [Concomitant]
     Active Substance: COPPER
  41. MAGNESIUM OXIDE. [Concomitant]
     Active Substance: MAGNESIUM OXIDE
  42. VITAMIN D3 [Concomitant]
     Active Substance: CHOLECALCIFEROL
  43. AMLODIPINE BESYLATE. [Concomitant]
     Active Substance: AMLODIPINE BESYLATE

REACTIONS (3)
  - Fibromyalgia [Recovering/Resolving]
  - Malaise [Not Recovered/Not Resolved]
  - Drug ineffective [Unknown]
